FAERS Safety Report 7465405-3 (Version None)
Quarter: 2011Q2

REPORT INFORMATION
  Report Type: 
  Country: None (occurrence: None)
  Receive Date: 20110509
  Receipt Date: 20100802
  Transmission Date: 20111010
  Serious: No
  Sender: FDA-Public Use
  Company Number: US-BAUSCH-2010BL004291

PATIENT
  Age: 48 Year
  Sex: Female

DRUGS (2)
  1. LOTEMAX [Suspect]
     Route: 047
     Dates: start: 20100727, end: 20100802
  2. LOTEMAX [Suspect]
     Indication: GIANT PAPILLARY CONJUNCTIVITIS
     Route: 047
     Dates: start: 20100713, end: 20100726

REACTIONS (1)
  - URTICARIA [None]
